FAERS Safety Report 7372338-X (Version None)
Quarter: 2011Q1

REPORT INFORMATION
  Report Type: 
  Country: None (occurrence: None)
  Receive Date: 20110324
  Receipt Date: 20110318
  Transmission Date: 20110831
  Serious: Yes (Hospitalization)
  Sender: FDA-Public Use
  Company Number: B0706810A

PATIENT
  Sex: Female

DRUGS (6)
  1. ENALAPRIL MALEATE [Concomitant]
     Route: 048
     Dates: end: 20110202
  2. INEGY [Concomitant]
     Route: 048
  3. DAFALGAN [Concomitant]
     Dosage: 500MG THREE TIMES PER DAY
     Route: 048
  4. INIPOMP [Concomitant]
     Dosage: 20MG UNKNOWN
     Route: 048
     Dates: start: 20110202
  5. LOXEN [Concomitant]
     Dosage: 50MG TWICE PER DAY
     Route: 048
  6. ZELITREX [Suspect]
     Route: 048
     Dates: start: 20110129, end: 20110201

REACTIONS (7)
  - HYPONATRAEMIA [None]
  - SPEECH DISORDER [None]
  - BALANCE DISORDER [None]
  - BLOOD CREATININE INCREASED [None]
  - BLOOD UREA INCREASED [None]
  - RENAL FAILURE ACUTE [None]
  - BLOOD URIC ACID INCREASED [None]
